FAERS Safety Report 22119075 (Version 1)
Quarter: 2023Q1

REPORT INFORMATION
  Report Type: Spontaneous
  Country: CN (occurrence: CN)
  Receive Date: 20230321
  Receipt Date: 20230321
  Transmission Date: 20230418
  Serious: Yes (Hospitalization, Other)
  Sender: FDA-Public Use
  Company Number: CN-HALEON-CNCH2023APC012114

PATIENT

DRUGS (2)
  1. IBUPROFEN [Suspect]
     Active Substance: IBUPROFEN
     Indication: Toothache
     Dosage: 13 DF, QD
     Route: 048
     Dates: start: 20230225, end: 20230225
  2. ASPIRIN [Suspect]
     Active Substance: ASPIRIN
     Indication: Cerebral infarction
     Dosage: 100 MG, QD
     Route: 048
     Dates: start: 20230225, end: 20230303

REACTIONS (12)
  - Abdominal pain [Recovering/Resolving]
  - Abdominal pain upper [Recovering/Resolving]
  - Pain [Recovering/Resolving]
  - Gastric mucosal hypertrophy [Recovering/Resolving]
  - Gastrointestinal wall thickening [Recovering/Resolving]
  - Diverticulum intestinal [Recovering/Resolving]
  - Chronic gastritis [Recovering/Resolving]
  - Gastritis erosive [Recovering/Resolving]
  - Gastric ulcer [Recovering/Resolving]
  - Peptic ulcer [Recovering/Resolving]
  - Hepatic function abnormal [Recovering/Resolving]
  - Overdose [Unknown]

NARRATIVE: CASE EVENT DATE: 20230225
